FAERS Safety Report 18035056 (Version 1)
Quarter: 2020Q3

REPORT INFORMATION
  Report Type: Spontaneous
  Country: US (occurrence: US)
  Receive Date: 20200716
  Receipt Date: 20200716
  Transmission Date: 20201103
  Serious: Yes (Hospitalization)
  Sender: FDA-Public Use
  Company Number: None

PATIENT
  Age: 63 Year
  Sex: Female

DRUGS (13)
  1. NADOLOL. [Concomitant]
     Active Substance: NADOLOL
  2. SPIRONOLACT [Concomitant]
     Active Substance: SPIRONOLACTONE
  3. IBRANCE [Suspect]
     Active Substance: PALBOCICLIB
     Indication: BREAST CANCER
     Dosage: 1 TAB (125MG) QD PO 21 D ON ? 7 D OFF
     Route: 048
     Dates: start: 20170413
  4. ATROVASTATIN [Concomitant]
     Active Substance: ATORVASTATIN CALCIUM
  5. FUROSEMIDE. [Concomitant]
     Active Substance: FUROSEMIDE
  6. SERTRALINE [Concomitant]
     Active Substance: SERTRALINE HYDROCHLORIDE
  7. XIFAXAN [Concomitant]
     Active Substance: RIFAXIMIN
  8. LETROZOLE. [Concomitant]
     Active Substance: LETROZOLE
  9. HUMALOG KWIK [Concomitant]
  10. OXYCODONE [Concomitant]
     Active Substance: OXYCODONE
  11. ZOLIPDEM [Concomitant]
     Active Substance: ZOLPIDEM TARTRATE
  12. PANTOPRAZOLE [Concomitant]
     Active Substance: PANTOPRAZOLE
  13. LANTUS [Concomitant]
     Active Substance: INSULIN GLARGINE

REACTIONS (1)
  - Hospitalisation [None]

NARRATIVE: CASE EVENT DATE: 201908
